FAERS Safety Report 6475606-9 (Version None)
Quarter: 2009Q4

REPORT INFORMATION
  Report Type: 
  Country: None (occurrence: None)
  Receive Date: 20091204
  Receipt Date: 20091126
  Transmission Date: 20100525
  Serious: Yes (Other)
  Sender: FDA-Public Use
  Company Number: BR-BRISTOL-MYERS SQUIBB COMPANY-14796767

PATIENT
  Age: 22 Year
  Sex: Female
  Weight: 65 kg

DRUGS (1)
  1. BECENUN [Suspect]
     Dosage: DOSE-300 MG/M2
     Route: 042
     Dates: start: 20090701

REACTIONS (4)
  - BURNING SENSATION [None]
  - CONVULSION [None]
  - ERYTHEMA [None]
  - FACIAL PAIN [None]
